FAERS Safety Report 15084287 (Version 1)
Quarter: 2018Q2

REPORT INFORMATION
  Report Type: Spontaneous
  Country: GB (occurrence: GB)
  Receive Date: 20180628
  Receipt Date: 20180628
  Transmission Date: 20180711
  Serious: Yes (Other)
  Sender: FDA-Public Use
  Company Number: GB-PFIZER INC-2018254236

PATIENT
  Age: 5 Year
  Sex: Male
  Weight: 14.5 kg

DRUGS (3)
  1. ORAMORPH [Concomitant]
     Active Substance: MORPHINE SULFATE
  2. PARACETAMOL [Suspect]
     Active Substance: ACETAMINOPHEN
     Indication: POSTOPERATIVE CARE
     Dosage: 1 DF, UNK (APPROXIMATELY 1 HOUR APART)
     Route: 054
     Dates: start: 20180511, end: 20180511
  3. IBUPROFEN. [Suspect]
     Active Substance: IBUPROFEN
     Indication: POSTOPERATIVE CARE
     Dosage: 1 DF, UNK (APPROXIMATELY 1 HOUR APART)
     Route: 054
     Dates: start: 20180511, end: 20180511

REACTIONS (8)
  - Anal pruritus [Not Recovered/Not Resolved]
  - Condition aggravated [Unknown]
  - Rectal haemorrhage [Recovered/Resolved]
  - Abdominal pain lower [Unknown]
  - Anorectal discomfort [Unknown]
  - Perianal erythema [Recovering/Resolving]
  - Eye swelling [Unknown]
  - Skin tightness [Recovering/Resolving]

NARRATIVE: CASE EVENT DATE: 20180511
